FAERS Safety Report 9197238 (Version 1)
Quarter: 2013Q1

REPORT INFORMATION
  Report Type: Spontaneous
  Country: US (occurrence: US)
  Receive Date: 20130328
  Receipt Date: 20130328
  Transmission Date: 20140127
  Serious: Yes (Other)
  Sender: FDA-Public Use
  Company Number: US-NOVOPROD-374182

PATIENT
  Age: 63 Year
  Sex: Female

DRUGS (2)
  1. NOVOLIN 70/30 [Suspect]
     Indication: TYPE 2 DIABETES MELLITUS
     Dosage: UNK
     Route: 058
     Dates: end: 2012
  2. NOVOLIN 70/30 [Suspect]
     Dosage: UNK
     Route: 058
     Dates: start: 201303

REACTIONS (5)
  - Loss of consciousness [Recovered/Resolved]
  - Product quality issue [Recovered/Resolved]
  - Blood glucose increased [Recovered/Resolved]
  - Drug ineffective [Not Recovered/Not Resolved]
  - Blood glucose increased [Not Recovered/Not Resolved]
